FAERS Safety Report 12915681 (Version 1)
Quarter: 2016Q4

REPORT INFORMATION
  Report Type: Spontaneous
  Country: US (occurrence: US)
  Receive Date: 20161103
  Receipt Date: 20161103
  Transmission Date: 20170207
  Serious: Yes (Death, Hospitalization)
  Sender: FDA-Public Use
  Company Number: None

PATIENT
  Age: 75 Year
  Sex: Female
  Weight: 74.6 kg

DRUGS (7)
  1. VINCRISTINE SULFATE. [Suspect]
     Active Substance: VINCRISTINE SULFATE
     Dates: end: 20131217
  2. ETOPOSIDE (VP-16) [Suspect]
     Active Substance: ETOPOSIDE
     Dates: end: 20131217
  3. PREDNISONE. [Suspect]
     Active Substance: PREDNISONE
     Dates: end: 20131217
  4. CYCLOPHOSPHAMIDE. [Suspect]
     Active Substance: CYCLOPHOSPHAMIDE
     Dates: end: 20131217
  5. RITUXIMAB (MOAB C2B8 ANTI CD20, CHIMERIC) [Suspect]
     Active Substance: RITUXIMAB
     Dates: end: 20131213
  6. METHOTREXATE. [Suspect]
     Active Substance: METHOTREXATE
     Dates: end: 20131224
  7. DOXORUBICIN HYDROCHLORIDE. [Suspect]
     Active Substance: DOXORUBICIN HYDROCHLORIDE
     Dates: end: 20131217

REACTIONS (11)
  - Lung infiltration [None]
  - Asthenia [None]
  - Ileus [None]
  - Pulmonary oedema [None]
  - Neutropenia [None]
  - Septic shock [None]
  - Blood bilirubin increased [None]
  - Thrombocytopenia [None]
  - Respiratory failure [None]
  - Toxic epidermal necrolysis [None]
  - Bacteraemia [None]

NARRATIVE: CASE EVENT DATE: 20131214
